FAERS Safety Report 21567897 (Version 1)
Quarter: 2022Q4

REPORT INFORMATION
  Report Type: Spontaneous
  Country: US (occurrence: US)
  Receive Date: 20221108
  Receipt Date: 20221108
  Transmission Date: 20230112
  Serious: No
  Sender: FDA-Public Use
  Company Number: US-ABBVIE-4187256

PATIENT
  Sex: Female

DRUGS (2)
  1. LUPRON DEPOT [Suspect]
     Active Substance: LEUPROLIDE ACETATE
     Indication: Breast cancer
     Route: 065
     Dates: start: 2018
  2. LUPRON DEPOT [Suspect]
     Active Substance: LEUPROLIDE ACETATE

REACTIONS (4)
  - Feeling abnormal [Unknown]
  - Bone density abnormal [Unknown]
  - Vitamin B12 decreased [Unknown]
  - Osteopenia [Unknown]
